FAERS Safety Report 8554401 (Version 5)
Quarter: 2012Q4

REPORT INFORMATION
  Report Type: 
  Country: JP (occurrence: JP)
  Receive Date: 20120509
  Receipt Date: 20121129
  Transmission Date: 20130627
  Serious: Yes (Death)
  Sender: FDA-Public Use
  Company Number: PHHY2012JP039231

PATIENT
  Sex: Female

DRUGS (5)
  1. METHYLPREDNISOLONE [Suspect]
     Indication: STILL^S DISEASE ADULT ONSET
     Dosage: 500 mg, per day: for 3 days
  2. METHYLPREDNISOLONE [Suspect]
     Indication: DISSEMINATED INTRAVASCULAR COAGULATION
     Dosage: 1000 mg, per day: for 3 days
  3. PREDNISOLONE SANDOZ [Suspect]
     Indication: DISSEMINATED INTRAVASCULAR COAGULATION
     Dosage: 50 mg, per day
     Route: 048
  4. PREDNISOLONE SANDOZ [Suspect]
     Indication: STILL^S DISEASE ADULT ONSET
  5. CICLOSPORIN [Concomitant]
     Dosage: UNK UKN, UNK
     Route: 048

REACTIONS (3)
  - Gastrointestinal haemorrhage [Fatal]
  - Multi-organ failure [Fatal]
  - Drug ineffective [Unknown]
